FAERS Safety Report 9661300 (Version 2)
Quarter: 2013Q4

REPORT INFORMATION
  Report Type: Spontaneous
  Country: US (occurrence: US)
  Receive Date: 20131031
  Receipt Date: 20131107
  Transmission Date: 20140711
  Serious: Yes (Other)
  Sender: FDA-Public Use
  Company Number: US-TEVA-441611USA

PATIENT
  Age: 41 Year
  Sex: Female

DRUGS (7)
  1. CISPLATIN [Suspect]
     Indication: SARCOMA UTERUS
     Dosage: 20 MG/M2
     Route: 065
  2. IFOSFAMIDE [Interacting]
     Indication: SARCOMA UTERUS
     Dosage: 1.5G/M2 OVER 90 MIN ON DAYS 1-4
     Route: 065
  3. APREPITANT [Interacting]
     Indication: PREMEDICATION
     Dosage: 125MG
     Route: 065
  4. APREPITANT [Interacting]
     Dosage: 80MG EACH MORNING FOR 2 DAYS
     Route: 065
  5. DEXAMETHASONE [Concomitant]
     Indication: PREMEDICATION
     Dosage: 10MG
     Route: 065
  6. DEXAMETHASONE [Concomitant]
     Dosage: 8MG EACH MORNING FOR 4 DAYS
     Route: 065
  7. MESNA [Concomitant]
     Indication: SARCOMA UTERUS
     Route: 065

REACTIONS (4)
  - Mental status changes [Recovered/Resolved]
  - Hallucinations, mixed [Recovered/Resolved]
  - Affect lability [Recovered/Resolved]
  - Drug interaction [Recovered/Resolved]
